FAERS Safety Report 8908757 (Version 1)
Quarter: 2012Q4

REPORT INFORMATION
  Report Type: Report from Study
  Country: US (occurrence: US)
  Receive Date: 20121114
  Receipt Date: 20121114
  Transmission Date: 20130627
  Serious: Yes (Other)
  Sender: FDA-Public Use
  Company Number: US-ABBOTT-12P-163-1004727-00

PATIENT
  Age: 48 None
  Sex: Female
  Weight: 92.16 kg

DRUGS (9)
  1. LUPRON DEPOT [Suspect]
     Indication: ENDOMETRIOSIS
     Dates: start: 201008
  2. XANAX [Concomitant]
     Indication: ANXIETY
  3. PROZAC [Concomitant]
     Indication: ANXIETY
  4. AMITRIPTYLINE [Concomitant]
     Indication: ANXIETY
  5. ATENOLOL [Concomitant]
     Indication: HYPERTENSION
  6. LOVASTATIN [Concomitant]
     Indication: BLOOD CHOLESTEROL INCREASED
  7. NORTHINDRONE ACETATE [Concomitant]
     Indication: HORMONE THERAPY
  8. GEMFIBROZIL [Concomitant]
     Indication: BLOOD CHOLESTEROL INCREASED
  9. FLONASE [Concomitant]
     Indication: HYPERSENSITIVITY

REACTIONS (2)
  - Vitreous floaters [Recovering/Resolving]
  - Retinal detachment [Recovered/Resolved]
